FAERS Safety Report 23543309 (Version 2)
Quarter: 2024Q1

REPORT INFORMATION
  Report Type: Spontaneous
  Country: US (occurrence: US)
  Receive Date: 20240220
  Receipt Date: 20240308
  Transmission Date: 20240410
  Serious: Yes (Other)
  Sender: FDA-Public Use
  Company Number: US-HIKMA PHARMACEUTICALS USA INC.-US-H14001-24-01181

PATIENT
  Age: 57 Year
  Sex: Female

DRUGS (1)
  1. INFUMORPH [Suspect]
     Active Substance: MORPHINE SULFATE
     Indication: Spinal pain
     Dosage: 550 MILLIGRAM, DAILY
     Route: 037
     Dates: start: 20231214

REACTIONS (4)
  - Wound dehiscence [Recovered/Resolved]
  - Wound secretion [Recovered/Resolved]
  - Impaired healing [Recovered/Resolved]
  - Implant site infection [Unknown]

NARRATIVE: CASE EVENT DATE: 20231201
